FAERS Safety Report 6049957-6 (Version None)
Quarter: 2009Q1

REPORT INFORMATION
  Report Type: 
  Country: None (occurrence: None)
  Receive Date: 20090121
  Receipt Date: 20090105
  Transmission Date: 20090719
  Serious: Yes (Hospitalization)
  Sender: FDA-Public Use
  Company Number: 8040938

PATIENT
  Sex: Male
  Weight: 27.3 kg

DRUGS (3)
  1. KEPPRA [Suspect]
     Dosage: 2250 MG /D TRP
     Route: 064
     Dates: end: 20081215
  2. VITAMIN TAB [Concomitant]
  3. LEXAPRO [Concomitant]

REACTIONS (4)
  - DEHYDRATION [None]
  - JAUNDICE NEONATAL [None]
  - MATERNAL DRUGS AFFECTING FOETUS [None]
  - PREMATURE BABY [None]
